FAERS Safety Report 7559495-7 (Version None)
Quarter: 2011Q2

REPORT INFORMATION
  Report Type: 
  Country: None (occurrence: None)
  Receive Date: 20110621
  Receipt Date: 20110606
  Transmission Date: 20111010
  Serious: Yes (Hospitalization)
  Sender: FDA-Public Use
  Company Number: FR-SANOFI-AVENTIS-2011SA036110

PATIENT
  Age: 36 Year
  Sex: Female

DRUGS (3)
  1. PIRILENE [Concomitant]
     Indication: TUBERCULOSIS
     Route: 048
     Dates: start: 20110113, end: 20110314
  2. RIFAMPIN AND ISONIAZID [Suspect]
     Indication: TUBERCULOSIS
     Route: 048
     Dates: start: 20110113, end: 20110502
  3. MYAMBUTOL [Concomitant]
     Indication: TUBERCULOSIS
     Route: 048
     Dates: start: 20110113, end: 20110314

REACTIONS (4)
  - PYREXIA [None]
  - COLITIS [None]
  - ABDOMINAL PAIN [None]
  - DIARRHOEA [None]
